FAERS Safety Report 11788107 (Version 2)
Quarter: 2015Q4

REPORT INFORMATION
  Report Type: Report from Study
  Country: CA (occurrence: CA)
  Receive Date: 20151130
  Receipt Date: 20151228
  Transmission Date: 20160305
  Serious: Yes (Other)
  Sender: FDA-Public Use
  Company Number: CA-ROCHE-1595019

PATIENT
  Age: 48 Year
  Sex: Female

DRUGS (16)
  1. SENNOSIDES. [Concomitant]
     Active Substance: SENNOSIDES
  2. DIPHENHYDRAMINE. [Concomitant]
     Active Substance: DIPHENHYDRAMINE
     Indication: PREMEDICATION
     Route: 048
     Dates: start: 201412
  3. ACETAMINOPHEN. [Concomitant]
     Active Substance: ACETAMINOPHEN
     Indication: PREMEDICATION
     Route: 048
     Dates: start: 201412
  4. ALENDRONATE [Concomitant]
     Active Substance: ALENDRONATE SODIUM
  5. METFORMIN [Concomitant]
     Active Substance: METFORMIN HYDROCHLORIDE
  6. NICODERM CQ [Concomitant]
     Active Substance: NICOTINE
  7. RITUXAN [Suspect]
     Active Substance: RITUXIMAB
     Indication: ANTIPHOSPHOLIPID SYNDROME
     Route: 042
     Dates: start: 201412
  8. PREDNISONE. [Concomitant]
     Active Substance: PREDNISONE
  9. DOCUSATE SODIUM. [Concomitant]
     Active Substance: DOCUSATE SODIUM
  10. WARFARIN [Concomitant]
     Active Substance: WARFARIN
  11. RAMIPRIL. [Concomitant]
     Active Substance: RAMIPRIL
  12. RITUXAN [Suspect]
     Active Substance: RITUXIMAB
     Route: 042
     Dates: start: 20150615
  13. METHYLPREDNISOLONE. [Concomitant]
     Active Substance: METHYLPREDNISOLONE
     Indication: PREMEDICATION
     Route: 042
     Dates: start: 201412
  14. HUMULIN N [Concomitant]
     Active Substance: INSULIN HUMAN
  15. HYDROMORPHONE [Concomitant]
     Active Substance: HYDROMORPHONE
  16. QUETIAPINE [Concomitant]
     Active Substance: QUETIAPINE

REACTIONS (14)
  - Dry mouth [Unknown]
  - Muscular weakness [Unknown]
  - Neurological symptom [Recovering/Resolving]
  - Swelling [Unknown]
  - Alopecia [Recovered/Resolved]
  - Sciatica [Recovering/Resolving]
  - Muscle spasms [Recovering/Resolving]
  - Peripheral swelling [Unknown]
  - Heart rate increased [Unknown]
  - Hair texture abnormal [Unknown]
  - Hyperhidrosis [Unknown]
  - Anxiety [Unknown]
  - Fatigue [Unknown]
  - Blood pressure increased [Unknown]

NARRATIVE: CASE EVENT DATE: 2015
